FAERS Safety Report 19325830 (Version 2)
Quarter: 2021Q2

REPORT INFORMATION
  Report Type: Spontaneous
  Country: AU (occurrence: AU)
  Receive Date: 20210528
  Receipt Date: 20210610
  Transmission Date: 20210717
  Serious: Yes (Life-Threatening)
  Sender: FDA-Public Use
  Company Number: AU-PFIZER INC-8898

PATIENT
  Age: 77 Year
  Sex: Female

DRUGS (4)
  1. ASPIRIN /00002701/ [Concomitant]
     Active Substance: ASPIRIN
     Route: 065
  2. AMIODARONE HCL [Suspect]
     Active Substance: AMIODARONE HYDROCHLORIDE
     Indication: ATRIAL FIBRILLATION
     Dosage: 300 MG
     Route: 042
  3. ALPRAZOLAM. [Concomitant]
     Active Substance: ALPRAZOLAM
     Route: 065
  4. CANDESARTAN. [Concomitant]
     Active Substance: CANDESARTAN
     Route: 065

REACTIONS (2)
  - Anaphylactic reaction [Recovered/Resolved]
  - Cardiac arrest [Recovered/Resolved]
